FAERS Safety Report 11008630 (Version 2)
Quarter: 2015Q2

REPORT INFORMATION
  Report Type: Spontaneous
  Country: US (occurrence: None)
  Receive Date: 20150408
  Receipt Date: 20150415
  Transmission Date: 20150821
  Serious: Yes (Hospitalization, Other)
  Sender: FDA-Public Use
  Company Number: ADR-2014-01006

PATIENT
  Age: 41 Year
  Sex: Male

DRUGS (5)
  1. MORPHINE [Suspect]
     Active Substance: MORPHINE
  2. FENTANYL 1000 MG/ML [Suspect]
     Active Substance: FENTANYL
  3. CLONIDINE 500 MG/ML [Suspect]
     Active Substance: CLONIDINE
  4. BUPIVACAINE 20 MG/ML [Suspect]
     Active Substance: BUPIVACAINE
  5. BACLOFEN INTRATHECAL [Suspect]
     Active Substance: BACLOFEN
     Indication: PAIN

REACTIONS (21)
  - Treatment noncompliance [None]
  - Body temperature increased [None]
  - Malaise [None]
  - Therapeutic response decreased [None]
  - Device damage [None]
  - Insomnia [None]
  - Pump reservoir issue [None]
  - Pain in extremity [None]
  - Diarrhoea [None]
  - Tremor [None]
  - Drug withdrawal syndrome [None]
  - Pain [None]
  - Neoplasm malignant [None]
  - Device battery issue [None]
  - Drug effect decreased [None]
  - Vomiting [None]
  - Device issue [None]
  - Back pain [None]
  - Platelet count decreased [None]
  - Chest pain [None]
  - Lymphadenopathy [None]
